FAERS Safety Report 9494226 (Version 4)
Quarter: 2013Q4

REPORT INFORMATION
  Report Type: Spontaneous
  Country: US (occurrence: None)
  Receive Date: 20130828
  Receipt Date: 20131112
  Transmission Date: 20140711
  Serious: Yes (Hospitalization)
  Sender: FDA-Public Use
  Company Number: US-000763

PATIENT
  Age: 46 Year
  Sex: Female

DRUGS (14)
  1. GATTEX [Suspect]
     Indication: SHORT-BOWEL SYNDROME
     Route: 058
     Dates: start: 2010, end: 201310
  2. SODIUM BICARBONATE [Concomitant]
  3. POTASSIUM CHLORIDE [Concomitant]
  4. MAGONATE [Concomitant]
  5. COLECALCIFEROL [Concomitant]
  6. STRESS B COMPLEX / 07499601 [Concomitant]
  7. XARELTO [Concomitant]
  8. MULTIVITAMINS [Concomitant]
  9. TUMS / 07357001/ [Concomitant]
  10. ZOFRAN / 00955301/ [Concomitant]
  11. PANTOPRAZOLE [Concomitant]
  12. METOCLOPRAMIDE [Concomitant]
  13. CALCIUM + VIT D [Concomitant]
  14. B12-VITAMIN [Concomitant]

REACTIONS (11)
  - Diarrhoea [None]
  - Nausea [None]
  - Dizziness [None]
  - Headache [None]
  - Dehydration [None]
  - Electrolyte imbalance [None]
  - Vomiting [None]
  - Abdominal pain [None]
  - Lactic acidosis [None]
  - Malaise [None]
  - Intentional drug misuse [None]
